FAERS Safety Report 19855690 (Version 2)
Quarter: 2022Q3

REPORT INFORMATION
  Report Type: Spontaneous
  Country: CZ (occurrence: CZ)
  Receive Date: 20210920
  Receipt Date: 20220913
  Transmission Date: 20221027
  Serious: Yes (Other)
  Sender: FDA-Public Use
  Company Number: None

PATIENT
  Age: 40 Year
  Sex: Male

DRUGS (10)
  1. SIMVASTATIN [Suspect]
     Active Substance: SIMVASTATIN
     Indication: Dyslipidaemia
     Dosage: 20 MILLIGRAM DAILY, 20 MG IN THE EVENING
     Route: 048
  2. METOPROLOL [Suspect]
     Active Substance: METOPROLOL
     Indication: Cardiovascular disorder
     Dosage: 2 DOSAGE FORM (25 MG IN THE MORNING AND EVENING )
  3. MOXONIDINE [Suspect]
     Active Substance: MOXONIDINE
     Indication: Hypertension
     Dosage: .4 MILLIGRAM DAILY; 0.4 MG IN THE MORNING
     Route: 048
  4. METOPROLOL [Concomitant]
     Active Substance: METOPROLOL
     Dosage: 50 MILLIGRAM DAILY
  5. MOXONIDINE [Concomitant]
     Active Substance: MOXONIDINE
  6. SIMVASTATIN [Concomitant]
     Active Substance: SIMVASTATIN
  7. METOPROLOL [Suspect]
     Active Substance: METOPROLOL
     Indication: Cardiovascular disorder
     Dosage: 25 MILLIGRAM, QD
  8. METOPROLOL [Suspect]
     Active Substance: METOPROLOL
     Indication: Cardiovascular disorder
     Dosage: 50 MILLIGRAM, QD
  9. SIMVASTATIN [Suspect]
     Active Substance: SIMVASTATIN
     Indication: Cardiovascular disorder
     Dosage: 1 DOSAGE FORM, PM (20 MG IN THE EVENING )
  10. MOXONIDINE [Suspect]
     Active Substance: MOXONIDINE
     Indication: Hypertension
     Dosage: 1 DOSAGE FORM, AM (0.4 MG IN THE MORNING)

REACTIONS (6)
  - Dizziness [Recovered/Resolved]
  - Performance status decreased [Recovered/Resolved]
  - Sinus bradycardia [Recovered/Resolved]
  - Asthenia [Recovered/Resolved]
  - Drug ineffective [Unknown]
  - Quality of life decreased [Unknown]
